FAERS Safety Report 12565843 (Version 2)
Quarter: 2016Q3

REPORT INFORMATION
  Report Type: Report from Study
  Country: US (occurrence: US)
  Receive Date: 20160718
  Receipt Date: 20160726
  Transmission Date: 20161109
  Serious: Yes (Hospitalization, Other)
  Sender: FDA-Public Use
  Company Number: US-ABBVIE-16K-163-1673555-00

PATIENT
  Age: 64 Year
  Sex: Female

DRUGS (1)
  1. HUMIRA [Suspect]
     Active Substance: ADALIMUMAB
     Indication: HIDRADENITIS
     Route: 058
     Dates: start: 201603, end: 20160628

REACTIONS (8)
  - Haematemesis [Recovered/Resolved]
  - Scar [Unknown]
  - Haemoptysis [Unknown]
  - Medical device site haemorrhage [Not Recovered/Not Resolved]
  - Medical device site infection [Unknown]
  - Dizziness [Unknown]
  - Abscess [Not Recovered/Not Resolved]
  - Medical device site erosion [Not Recovered/Not Resolved]

NARRATIVE: CASE EVENT DATE: 20160626
